FAERS Safety Report 25815748 (Version 3)
Quarter: 2025Q4

REPORT INFORMATION
  Report Type: Spontaneous
  Country: EU (occurrence: EU)
  Receive Date: 20250918
  Receipt Date: 20251009
  Transmission Date: 20260118
  Serious: Yes (Disabling, Other)
  Sender: AUROBINDO
  Company Number: EU-MLMSERVICE-20250827-PI626810-00123-2

PATIENT
  Age: 62 Year
  Sex: Male

DRUGS (10)
  1. DOCETAXEL [Suspect]
     Active Substance: DOCETAXEL
     Indication: Disease progression
     Dosage: 45 MILLIGRAM/SQ. METER (INITIATED AT A PRE-EMPTIVE REDUCED DOSE (45 MG/M2, 60% OF THE STANDARD))
     Route: 065
     Dates: start: 20240725, end: 202411
  2. DOCETAXEL [Suspect]
     Active Substance: DOCETAXEL
     Indication: Metastases to adrenals
  3. DOCETAXEL [Suspect]
     Active Substance: DOCETAXEL
     Indication: Non-small cell lung cancer metastatic
  4. CARBOPLATIN [Suspect]
     Active Substance: CARBOPLATIN
     Indication: Non-small cell lung cancer
     Dosage: UNK
     Route: 065
  5. VINORELBINE TARTRATE [Suspect]
     Active Substance: VINORELBINE TARTRATE
     Indication: Non-small cell lung cancer
     Dosage: 25 MG/M2 (25 MG/M2 (FIRST CYCLE)
     Route: 042
     Dates: start: 20230619
  6. VINORELBINE TARTRATE [Suspect]
     Active Substance: VINORELBINE TARTRATE
     Dosage: 25 MG/M2 (25 MG/M2 (THREE ADDITIONAL CYCLES FROM JULY TO SEPTEMBER 2023))
     Route: 042
     Dates: start: 20230619
  7. TEPOTINIB [Suspect]
     Active Substance: TEPOTINIB
     Indication: Disease progression
     Dosage: 225 MILLIGRAM, DAILY
     Route: 048
     Dates: start: 202402
  8. TEPOTINIB [Suspect]
     Active Substance: TEPOTINIB
     Indication: Metastases to adrenals
     Dosage: 450 MILLIGRAM, ONCE A DAY
     Route: 048
     Dates: start: 20240425
  9. TEPOTINIB [Suspect]
     Active Substance: TEPOTINIB
     Indication: Non-small cell lung cancer metastatic
  10. CISPLATIN [Suspect]
     Active Substance: CISPLATIN
     Indication: Non-small cell lung cancer
     Dosage: 75 MG/M2
     Route: 065
     Dates: start: 20230619

REACTIONS (5)
  - Oedema peripheral [Recovered/Resolved]
  - Blood creatinine increased [Recovering/Resolving]
  - Renal impairment [Unknown]
  - Oesophagitis [Unknown]
  - Off label use [Unknown]

NARRATIVE: CASE EVENT DATE: 20240101
